FAERS Safety Report 9860155 (Version 2)
Quarter: 2014Q2

REPORT INFORMATION
  Report Type: Spontaneous
  Country: IT (occurrence: IT)
  Receive Date: 20140201
  Receipt Date: 20140402
  Transmission Date: 20141212
  Serious: Yes (Hospitalization)
  Sender: FDA-Public Use
  Company Number: IT-ROCHE-1342739

PATIENT
  Age: 69 Year
  Sex: Female

DRUGS (7)
  1. HERCEPTIN [Suspect]
     Indication: METAPLASTIC BREAST CARCINOMA
     Route: 042
     Dates: start: 20140122, end: 20140122
  2. ANASTROZOLE [Concomitant]
     Route: 048
     Dates: start: 20140110, end: 20140122
  3. ATENOLOL [Concomitant]
  4. COMBISARTAN [Concomitant]
  5. ZOLOFT [Concomitant]
  6. CATAPRESAN [Concomitant]
  7. SIVASTIN [Concomitant]

REACTIONS (3)
  - Hypertension [Recovering/Resolving]
  - Malaise [Recovering/Resolving]
  - Tremor [Recovering/Resolving]
